FAERS Safety Report 7908309-1 (Version None)
Quarter: 2011Q4

REPORT INFORMATION
  Report Type: 
  Country: None (occurrence: None)
  Receive Date: 20111111
  Receipt Date: 20111103
  Transmission Date: 20120403
  Serious: No
  Sender: FDA-Public Use
  Company Number: US-BIOGENIDEC-2011BI042070

PATIENT
  Age: 55 Year
  Sex: Female

DRUGS (5)
  1. ASPIRIN [Concomitant]
     Indication: PROPHYLAXIS
  2. AMLODIPINE [Concomitant]
     Indication: HYPERTENSION
  3. ATENOLOL [Concomitant]
     Indication: HYPERTENSION
  4. LOSARTAN [Concomitant]
     Indication: HYPERTENSION
  5. AVONEX [Suspect]
     Indication: MULTIPLE SCLEROSIS
     Route: 030
     Dates: start: 20050101

REACTIONS (5)
  - NEURALGIA [None]
  - VERTIGO [None]
  - CENTRAL NERVOUS SYSTEM LESION [None]
  - MUSCLE SPASMS [None]
  - FATIGUE [None]
